FAERS Safety Report 7813067-5 (Version None)
Quarter: 2011Q4

REPORT INFORMATION
  Report Type: 
  Country: None (occurrence: None)
  Receive Date: 20111013
  Receipt Date: 20111007
  Transmission Date: 20120403
  Serious: Yes (Hospitalization)
  Sender: FDA-Public Use
  Company Number: US-ROXANE LABORATORIES, INC.-2011-RO-01431RO

PATIENT
  Age: 20 Year
  Sex: Female

DRUGS (4)
  1. KETAMINE HCL [Suspect]
     Indication: SEDATION
     Dosage: 100 MG
     Route: 042
  2. FENTANYL [Suspect]
     Indication: SEDATION
     Dosage: 100 MCG
     Route: 042
  3. MIDAZOLAM HCL [Suspect]
     Indication: SEDATION
     Dosage: 7 MG
     Route: 042
  4. PROPOFOL [Suspect]
     Indication: SEDATION
     Dosage: 110 MG
     Route: 042

REACTIONS (1)
  - ANAESTHETIC COMPLICATION NEUROLOGICAL [None]
